FAERS Safety Report 6141181-1 (Version None)
Quarter: 2009Q2

REPORT INFORMATION
  Report Type: 
  Country: None (occurrence: None)
  Receive Date: 20090402
  Receipt Date: 20090327
  Transmission Date: 20091009
  Serious: Yes (Other)
  Sender: FDA-Public Use
  Company Number: PHHY2009RU11502

PATIENT
  Sex: Female

DRUGS (8)
  1. ACLASTA [Suspect]
     Indication: OSTEOPOROSIS
     Dosage: UNK
     Dates: start: 20090129
  2. METHOTREXATE [Concomitant]
     Dosage: 7.5 MG, QW
     Dates: start: 20040101
  3. FOLIC ACID [Concomitant]
  4. NICOTINIC ACID [Concomitant]
  5. NSAID'S [Concomitant]
  6. MUSCLE RELAXANTS [Concomitant]
  7. CALCIUM [Concomitant]
  8. VITAMIN D3 [Concomitant]

REACTIONS (3)
  - LYMPH NODE PAIN [None]
  - LYMPHADENOPATHY [None]
  - METASTASIS [None]
